FAERS Safety Report 8587929-8 (Version None)
Quarter: 2012Q3

REPORT INFORMATION
  Report Type: 
  Country: None (occurrence: None)
  Receive Date: 20120813
  Receipt Date: 20120801
  Transmission Date: 20120928
  Serious: No
  Sender: FDA-Public Use
  Company Number: US-BIOGENIDEC-2012BI029613

PATIENT
  Sex: Female

DRUGS (2)
  1. TYSABRI [Suspect]
     Indication: MULTIPLE SCLEROSIS
     Route: 042
     Dates: start: 20080714
  2. PENICILLIN [Concomitant]
     Indication: PRODUCT USED FOR UNKNOWN INDICATION

REACTIONS (17)
  - CALCINOSIS [None]
  - NECK INJURY [None]
  - FALL [None]
  - BACK DISORDER [None]
  - MEMORY IMPAIRMENT [None]
  - BLOOD CALCIUM DECREASED [None]
  - HAND FRACTURE [None]
  - ONYCHOMYCOSIS [None]
  - ARTHRALGIA [None]
  - ORAL FUNGAL INFECTION [None]
  - HAEMATOCHEZIA [None]
  - BURNING SENSATION [None]
  - CHOKING [None]
  - PERONEAL NERVE PALSY [None]
  - PARAESTHESIA [None]
  - BRONCHITIS [None]
  - COLONIC POLYP [None]
